FAERS Safety Report 12282979 (Version 4)
Quarter: 2016Q2

REPORT INFORMATION
  Report Type: Spontaneous
  Country: JP (occurrence: JP)
  Receive Date: 20160419
  Receipt Date: 20160615
  Transmission Date: 20160815
  Serious: Yes (Hospitalization, Other)
  Sender: FDA-Public Use
  Company Number: JP-MDT-ADR-2016-00712

PATIENT
  Age: 53 Year
  Sex: Male
  Weight: 50 kg

DRUGS (4)
  1. GABALON [Suspect]
     Active Substance: BACLOFEN
     Dosage: 153 MCG/DAY
     Route: 037
     Dates: start: 20160118, end: 20160127
  2. GABALON [Suspect]
     Active Substance: BACLOFEN
     Dosage: 70 MCG/DAY
     Route: 037
     Dates: start: 20151207, end: 20151216
  3. GABALON [Suspect]
     Active Substance: BACLOFEN
     Dosage: 50 MCG/DAY
     Route: 037
     Dates: start: 20151204, end: 20151207
  4. GABALON [Suspect]
     Active Substance: BACLOFEN
     Dosage: 133 MCG/DAY
     Route: 037
     Dates: start: 20151216, end: 20160118

REACTIONS (12)
  - Purulence [Recovered/Resolved]
  - Meningitis [Recovered/Resolved]
  - Wound [Recovered/Resolved]
  - C-reactive protein increased [Recovered/Resolved]
  - Medical device site inflammation [Recovered/Resolved]
  - White blood cell count increased [Recovered/Resolved]
  - Sepsis [Recovered/Resolved]
  - Impaired healing [Recovered/Resolved]
  - Pyrexia [Recovered/Resolved]
  - Medical device site infection [Recovered/Resolved]
  - Medical device site abscess [Recovered/Resolved]
  - Staphylococcus test positive [Recovered/Resolved]

NARRATIVE: CASE EVENT DATE: 20160127
